FAERS Safety Report 10163544 (Version 1)
Quarter: 2014Q2

REPORT INFORMATION
  Report Type: Spontaneous
  Country: US (occurrence: US)
  Receive Date: 20140509
  Receipt Date: 20140509
  Transmission Date: 20141212
  Serious: No
  Sender: FDA-Public Use
  Company Number: US-TEVA-480635USA

PATIENT
  Sex: Female

DRUGS (1)
  1. CLARAVIS [Suspect]
     Route: 048
     Dates: start: 20130619, end: 20131204

REACTIONS (3)
  - Menstruation irregular [Recovered/Resolved]
  - Hirsutism [Unknown]
  - Hair growth abnormal [Unknown]
